FAERS Safety Report 6697420-1 (Version None)
Quarter: 2010Q2

REPORT INFORMATION
  Report Type: 
  Country: None (occurrence: None)
  Receive Date: 20100426
  Receipt Date: 20100222
  Transmission Date: 20101027
  Serious: Yes (Death)
  Sender: FDA-Public Use
  Company Number: CHPA2010US03802

PATIENT
  Age: 39 Year
  Sex: Female

DRUGS (4)
  1. ACETAMINOPHEN (PARACETAMOL),ACETYLSAL ACID,CAFFEINE CITRATE (NCH) [Suspect]
     Dosage: UNK,UNK
     Route: 048
  2. ACETAMINOPHEN AND HYDROCODONE BITARTRATE [Suspect]
     Route: 048
  3. IMATINIB [Suspect]
     Route: 048
  4. DIGOXIN [Suspect]
     Route: 048

REACTIONS (1)
  - COMPLETED SUICIDE [None]
